FAERS Safety Report 12601999 (Version 1)
Quarter: 2016Q3

REPORT INFORMATION
  Report Type: Other
  Country: US (occurrence: US)
  Receive Date: 20160728
  Receipt Date: 20160728
  Transmission Date: 20161109
  Serious: Yes (Other)
  Sender: FDA-Public Use
  Company Number: US-NOVEL LABORATORIES, INC-2016-03156

PATIENT
  Age: 34 Year
  Sex: Female

DRUGS (1)
  1. MY WAY [Suspect]
     Active Substance: LEVONORGESTREL
     Indication: CONTRACEPTION
     Route: 065
     Dates: start: 20160603, end: 20160603

REACTIONS (3)
  - Pregnancy after post coital contraception [Unknown]
  - Maternal exposure before pregnancy [None]
  - Abortion induced [None]

NARRATIVE: CASE EVENT DATE: 20160620
